FAERS Safety Report 21471332 (Version 3)
Quarter: 2024Q3

REPORT INFORMATION
  Report Type: Report from Study
  Country: ES (occurrence: ES)
  Receive Date: 20221018
  Receipt Date: 20240702
  Transmission Date: 20241017
  Serious: Yes (Hospitalization, Disabling, Other)
  Sender: BOEHRINGER INGELHEIM
  Company Number: ES-BoehringerIngelheim-2021-BI-131765

PATIENT
  Age: 77 Year
  Sex: Male
  Weight: 68 kg

DRUGS (4)
  1. OFEV [Suspect]
     Active Substance: NINTEDANIB
     Indication: Idiopathic pulmonary fibrosis
     Dosage: 100MG/12H
     Route: 048
     Dates: start: 20210911, end: 202206
  2. OFEV [Suspect]
     Active Substance: NINTEDANIB
     Route: 048
     Dates: start: 202206, end: 20230126
  3. OFEV [Suspect]
     Active Substance: NINTEDANIB
     Route: 048
     Dates: start: 20230126
  4. TYVASO [Concomitant]
     Active Substance: TREPROSTINIL
     Indication: Product used for unknown indication
     Dosage: 0.6 MG/ML
     Dates: start: 202310

REACTIONS (15)
  - Vocal cord operation [Recovered/Resolved]
  - Pulmonary hypertension [Not Recovered/Not Resolved]
  - Bronchitis [Recovered/Resolved]
  - Idiopathic pulmonary fibrosis [Not Recovered/Not Resolved]
  - COVID-19 [Recovered/Resolved]
  - Aphonia [Recovered/Resolved]
  - Respiratory tract infection [Recovered/Resolved]
  - Post procedural complication [Not Recovered/Not Resolved]
  - Dysphonia [Not Recovered/Not Resolved]
  - Decreased appetite [Not Recovered/Not Resolved]
  - Diarrhoea [Not Recovered/Not Resolved]
  - Weight decreased [Not Recovered/Not Resolved]
  - Influenza [Recovered/Resolved]
  - Productive cough [Not Recovered/Not Resolved]
  - Respiratory disorder [Not Recovered/Not Resolved]

NARRATIVE: CASE EVENT DATE: 20211001
